FAERS Safety Report 9819387 (Version 2)
Quarter: 2014Q1

REPORT INFORMATION
  Report Type: Spontaneous
  Country: US (occurrence: US)
  Receive Date: 20140115
  Receipt Date: 20140131
  Transmission Date: 20141002
  Serious: No
  Sender: FDA-Public Use
  Company Number: US-PFIZER INC-2014008577

PATIENT
  Age: 86 Year
  Sex: Female

DRUGS (3)
  1. LIPITOR [Suspect]
     Dosage: UNK
  2. NEXIUM [Suspect]
     Dosage: UNK
  3. METHIMAZOLE [Concomitant]
     Dosage: UNK

REACTIONS (4)
  - Insomnia [Unknown]
  - Bone pain [Unknown]
  - Abdominal discomfort [Unknown]
  - Myalgia [Unknown]
